FAERS Safety Report 8780403 (Version 1)
Quarter: 2012Q4

REPORT INFORMATION
  Report Type: Spontaneous
  Country: US (occurrence: None)
  Receive Date: 20120905
  Receipt Date: 20120905
  Transmission Date: 20130627
  Serious: Yes (Death)
  Sender: FDA-Public Use
  Company Number: None

PATIENT
  Sex: Male

DRUGS (1)
  1. REUMOFAN PLUS [Suspect]

REACTIONS (6)
  - Metabolic disorder [None]
  - Renal disorder [None]
  - Gastrointestinal disorder [None]
  - Liver disorder [None]
  - Cardiac disorder [None]
  - Diabetes mellitus inadequate control [None]
